FAERS Safety Report 8384808-6 (Version None)
Quarter: 2012Q2

REPORT INFORMATION
  Report Type: 
  Country: None (occurrence: None)
  Receive Date: 20120524
  Receipt Date: 20120514
  Transmission Date: 20120825
  Serious: Yes (Death)
  Sender: FDA-Public Use
  Company Number: DE-FRI-1000028171

PATIENT
  Sex: Male

DRUGS (3)
  1. MEMANTINE HCL [Suspect]
     Dosage: 20 MG
     Route: 048
  2. MEMANTINE HCL [Suspect]
     Indication: MEMORY IMPAIRMENT
     Route: 048
  3. KEPPRA [Suspect]
     Indication: CONVULSION
     Route: 048

REACTIONS (9)
  - OFF LABEL USE [None]
  - SPEECH DISORDER [None]
  - DEPERSONALISATION [None]
  - PARALYSIS [None]
  - NAUSEA [None]
  - DIZZINESS [None]
  - BRAIN NEOPLASM [None]
  - HALLUCINATION [None]
  - DISTURBANCE IN ATTENTION [None]
